FAERS Safety Report 4647928-5 (Version None)
Quarter: 2005Q2

REPORT INFORMATION
  Report Type: 
  Country: None (occurrence: None)
  Receive Date: 20050428
  Receipt Date: 20050118
  Transmission Date: 20051028
  Serious: Yes (Hospitalization)
  Sender: FDA-Public Use
  Company Number: SE-NOVOPROD-243579

PATIENT
  Age: 65 Year
  Sex: Female

DRUGS (1)
  1. ACTIVELLE [Suspect]
     Indication: HORMONE REPLACEMENT THERAPY
     Dates: start: 19910101, end: 20020201

REACTIONS (2)
  - THROMBOPHLEBITIS [None]
  - VARICOSE VEIN [None]
